FAERS Safety Report 8798322 (Version 1)
Quarter: 2012Q4

REPORT INFORMATION
  Report Type: 
  Country: BR (occurrence: BR)
  Receive Date: 20120920
  Receipt Date: 20120920
  Transmission Date: 20130627
  Serious: Yes (Other)
  Sender: FDA-Public Use
  Company Number: BR-ELI_LILLY_AND_COMPANY-BR201209002956

PATIENT
  Age: 86 Year
  Sex: Female
  Weight: 60 kg

DRUGS (5)
  1. FORTEO [Suspect]
     Indication: OSTEOPOROSIS
     Dosage: 20 ug, qd
     Route: 058
     Dates: start: 2012, end: 2012
  2. CITALOPRAM [Concomitant]
     Indication: RELAXATION THERAPY
     Dosage: UNK, unknown
     Route: 065
  3. AMIODARONA [Concomitant]
     Dosage: 200 mg, each morning
     Route: 065
  4. ACETYLSALICYLIC ACID [Concomitant]
     Indication: CARDIAC DISORDER
     Dosage: 100 mg, unknown
     Route: 065
  5. SUPRADYN [Concomitant]
     Dosage: UNK, unknown
     Route: 065

REACTIONS (15)
  - Weight decreased [Recovered/Resolved]
  - Cardiac pacemaker insertion [Unknown]
  - Disease progression [Unknown]
  - Drug hypersensitivity [Recovered/Resolved]
  - Retching [Unknown]
  - Malaise [Recovered/Resolved]
  - Bone pain [Recovered/Resolved]
  - Abdominal discomfort [Recovered/Resolved]
  - Decreased appetite [Recovered/Resolved]
  - Pain [Recovered/Resolved]
  - Blood glucose decreased [Recovered/Resolved]
  - Emotional disorder [Recovered/Resolved]
  - Gait disturbance [Recovered/Resolved]
  - Intentional drug misuse [Unknown]
  - Balance disorder [Recovered/Resolved]
